FAERS Safety Report 25569504 (Version 1)
Quarter: 2025Q3

REPORT INFORMATION
  Report Type: Report from Study
  Country: US (occurrence: US)
  Receive Date: 20250716
  Receipt Date: 20250716
  Transmission Date: 20251021
  Serious: Yes (Other)
  Sender: ABBVIE
  Company Number: US-ABBVIE-6329674

PATIENT
  Age: 68 Year
  Sex: Female
  Weight: 56 kg

DRUGS (2)
  1. CREON [Suspect]
     Active Substance: PANCRELIPASE AMYLASE\PANCRELIPASE LIPASE\PANCRELIPASE PROTEASE
     Indication: Product used for unknown indication
     Dosage: 3600
     Route: 048
     Dates: start: 2023
  2. AMITRIPTYLINE [Concomitant]
     Active Substance: AMITRIPTYLINE
     Indication: Chronic hepatitis C
     Route: 048

REACTIONS (5)
  - Condition aggravated [Not Recovered/Not Resolved]
  - Feeling abnormal [Unknown]
  - Abdominal pain upper [Unknown]
  - Dyspepsia [Unknown]
  - Chronic hepatitis B [Unknown]

NARRATIVE: CASE EVENT DATE: 20250101
